FAERS Safety Report 17410533 (Version 1)
Quarter: 2020Q1

REPORT INFORMATION
  Report Type: Report from Study
  Country: CA (occurrence: CA)
  Receive Date: 20200212
  Receipt Date: 20200212
  Transmission Date: 20200409
  Serious: Yes (Other)
  Sender: FDA-Public Use
  Company Number: CA-JNJFOC-20191100934

PATIENT
  Sex: Male
  Weight: 68 kg

DRUGS (1)
  1. STELARA [Suspect]
     Active Substance: USTEKINUMAB
     Indication: CROHN^S DISEASE
     Dosage: ONGOING
     Route: 058
     Dates: start: 20190615

REACTIONS (1)
  - Malignant peritoneal neoplasm [Unknown]

NARRATIVE: CASE EVENT DATE: 2019
